FAERS Safety Report 7943372-3 (Version None)
Quarter: 2011Q4

REPORT INFORMATION
  Report Type: 
  Country: None (occurrence: None)
  Receive Date: 20111128
  Receipt Date: 20111118
  Transmission Date: 20120403
  Serious: Yes (Other)
  Sender: FDA-Public Use
  Company Number: US-BAYER-201031839NA

PATIENT
  Age: 30 Year
  Sex: Female
  Weight: 119.27 kg

DRUGS (17)
  1. CLINDAMYCIN [Concomitant]
     Dosage: UNK
     Dates: start: 20070324, end: 20070410
  2. PROAIR HFA [Concomitant]
     Indication: ASTHMA
     Dosage: UNK
     Dates: start: 20061201
  3. YASMIN [Suspect]
     Dosage: UNK
     Dates: start: 20070201
  4. DROSPIRENONE AND ETHINYL ESTRADIOL [Suspect]
     Dosage: UNK
     Route: 048
     Dates: start: 20080401, end: 20090701
  5. ALBUTEROL [Concomitant]
     Dosage: 2 PUFF(S), PRN
  6. THYROID TAB [Concomitant]
     Dosage: 3 GRAINS +#8211; 1 DAILY
  7. YASMIN [Suspect]
     Dosage: UNK
     Dates: start: 20060101, end: 20060201
  8. PHENTERMINE [Concomitant]
     Dosage: 37.5 MG, QD
  9. YASMIN [Suspect]
     Dosage: UNK
     Dates: start: 20071201
  10. YASMIN [Suspect]
     Dosage: UNK
     Dates: start: 20080401, end: 20080601
  11. DROSPIRENONE AND ETHINYL ESTRADIOL [Suspect]
     Dosage: UNK
     Dates: start: 20090701, end: 20090801
  12. CLARITIN [Concomitant]
     Dosage: 1 DAILY
  13. PHENDIMETRAZINE FUMARATE [Concomitant]
     Dosage: 25 MG, QD
  14. HYDROCHLOROTHIAZIDE [Concomitant]
     Dosage: 25 MG, QD
  15. YASMIN [Suspect]
     Dosage: UNK
     Route: 048
     Dates: start: 20041101
  16. YASMIN [Suspect]
     Dosage: UNK
     Dates: start: 20050901, end: 20051201
  17. YASMIN [Suspect]
     Dosage: UNK
     Dates: start: 20070601, end: 20070801

REACTIONS (9)
  - CHOLECYSTECTOMY [None]
  - GASTROINTESTINAL MOTILITY DISORDER [None]
  - DEPRESSION [None]
  - CHOLECYSTITIS CHRONIC [None]
  - DYSPEPSIA [None]
  - ANXIETY [None]
  - SCAR [None]
  - ABDOMINAL DISTENSION [None]
  - FLATULENCE [None]
